FAERS Safety Report 10461472 (Version 1)
Quarter: 2014Q3

REPORT INFORMATION
  Report Type: Spontaneous
  Country: US (occurrence: None)
  Receive Date: 20140916
  Receipt Date: 20140916
  Transmission Date: 20150326
  Serious: No
  Sender: FDA-Public Use
  Company Number: US-145407

PATIENT
  Sex: Female

DRUGS (3)
  1. WINRHO SDF LIQUID [Suspect]
     Active Substance: HUMAN RHO(D) IMMUNE GLOBULIN
     Indication: IMMUNE THROMBOCYTOPENIC PURPURA
  2. TYLENOL [Concomitant]
     Active Substance: ACETAMINOPHEN
  3. DIPHENHYDRAMINE [Concomitant]
     Active Substance: DIPHENHYDRAMINE

REACTIONS (4)
  - Headache [None]
  - Pyrexia [None]
  - Chills [None]
  - Nausea [None]
